FAERS Safety Report 22756233 (Version 6)
Quarter: 2024Q1

REPORT INFORMATION
  Report Type: Spontaneous
  Country: US (occurrence: US)
  Receive Date: 20230727
  Receipt Date: 20240110
  Transmission Date: 20240410
  Serious: Yes (Other)
  Sender: FDA-Public Use
  Company Number: US-ALXN-A202309549

PATIENT
  Age: 76 Year
  Sex: Male

DRUGS (4)
  1. ULTOMIRIS [Suspect]
     Active Substance: RAVULIZUMAB-CWVZ
     Indication: Myasthenia gravis
     Dosage: UNK
     Route: 065
     Dates: start: 20230726
  2. PREDNISONE [Concomitant]
     Active Substance: PREDNISONE
     Indication: Product used for unknown indication
     Dosage: 10 MG, UNK
     Route: 065
  3. PREDNISONE [Concomitant]
     Active Substance: PREDNISONE
     Dosage: 20 MG, UNK
     Route: 065
     Dates: start: 20230907
  4. ADVIL                              /00044201/ [Concomitant]
     Indication: Product used for unknown indication
     Dosage: UNK, 3 TO 9 QD
     Route: 065

REACTIONS (15)
  - Anaemia [Unknown]
  - Diverticulitis [Unknown]
  - Therapeutic response shortened [Unknown]
  - Muscular weakness [Unknown]
  - Dyspnoea exertional [Unknown]
  - Yellow skin [Unknown]
  - Hypoaesthesia [Unknown]
  - Paraesthesia [Unknown]
  - Asthenopia [Unknown]
  - Eyelid ptosis [Unknown]
  - Foot fracture [Unknown]
  - Balance disorder [Unknown]
  - Muscle spasms [Unknown]
  - Asthenia [Not Recovered/Not Resolved]
  - Fatigue [Unknown]

NARRATIVE: CASE EVENT DATE: 20230801
